FAERS Safety Report 6518430-0 (Version None)
Quarter: 2009Q4

REPORT INFORMATION
  Report Type: 
  Country: None (occurrence: None)
  Receive Date: 20091225
  Receipt Date: 20091124
  Transmission Date: 20100525
  Serious: No
  Sender: FDA-Public Use
  Company Number: US-BAYER-200941301NA

PATIENT
  Age: 20 Year
  Sex: Female
  Weight: 61 kg

DRUGS (2)
  1. MIRENA [Suspect]
     Indication: CONTRACEPTION
     Dosage: CONTINUOUS
     Route: 015
     Dates: start: 20070805
  2. HYDROCODONE [Concomitant]

REACTIONS (6)
  - ABDOMINAL PAIN UPPER [None]
  - AMENORRHOEA [None]
  - BACK PAIN [None]
  - HEADACHE [None]
  - MOOD SWINGS [None]
  - VOMITING [None]
